FAERS Safety Report 4380739-7 (Version None)
Quarter: 2004Q2

REPORT INFORMATION
  Report Type: 
  Country: None (occurrence: None)
  Receive Date: 20040618
  Receipt Date: 20040609
  Transmission Date: 20050107
  Serious: Yes (Hospitalization)
  Sender: FDA-Public Use
  Company Number: FR-BRISTOL-MYERS SQUIBB COMPANY-12610036

PATIENT
  Age: 64 Year
  Sex: Male
  Weight: 76 kg

DRUGS (5)
  1. COAPROVEL TABS [Suspect]
     Indication: ESSENTIAL HYPERTENSION
     Route: 048
  2. ISOPTIN [Suspect]
     Indication: ESSENTIAL HYPERTENSION
     Route: 048
  3. GLEEVEC [Suspect]
     Indication: CHRONIC MYELOID LEUKAEMIA
     Route: 048
     Dates: start: 20001015
  4. VASTAREL [Suspect]
     Indication: MYOCARDIAL INFARCTION
     Route: 048
  5. ADANCOR [Suspect]
     Indication: MYOCARDIAL INFARCTION
     Route: 048

REACTIONS (1)
  - HEMIANOPIA [None]
